FAERS Safety Report 4555813-2 (Version None)
Quarter: 2005Q1

REPORT INFORMATION
  Report Type: 
  Country: None (occurrence: None)
  Receive Date: 20050118
  Receipt Date: 20040914
  Transmission Date: 20050727
  Serious: No
  Sender: FDA-Public Use
  Company Number: A03200403150

PATIENT
  Age: 82 Year
  Sex: Male

DRUGS (1)
  1. UROXATRAL [Suspect]
     Indication: URINARY RETENTION
     Dosage: 10 MG OD - ORAL
     Route: 048
     Dates: start: 20040801

REACTIONS (1)
  - COUGH [None]
